FAERS Safety Report 7554268-3 (Version None)
Quarter: 2011Q2

REPORT INFORMATION
  Report Type: 
  Country: None (occurrence: None)
  Receive Date: 20110617
  Receipt Date: 20110608
  Transmission Date: 20111010
  Serious: Yes (Hospitalization)
  Sender: FDA-Public Use
  Company Number: BR-US-EMD SERONO, INC.-7064244

PATIENT
  Sex: Female

DRUGS (3)
  1. OMEPRAZOLE [Concomitant]
  2. REBIF [Suspect]
     Indication: RELAPSING-REMITTING MULTIPLE SCLEROSIS
     Dates: start: 20050916
  3. BACLOFEN [Concomitant]

REACTIONS (7)
  - SENSATION OF HEAVINESS [None]
  - DIZZINESS [None]
  - MALAISE [None]
  - ASTHENIA [None]
  - MONOPARESIS [None]
  - COORDINATION ABNORMAL [None]
  - MULTIPLE SCLEROSIS RELAPSE [None]
